FAERS Safety Report 6906726-X (Version None)
Quarter: 2010Q3

REPORT INFORMATION
  Report Type: 
  Country: None (occurrence: None)
  Receive Date: 20100804
  Receipt Date: 20091216
  Transmission Date: 20110219
  Serious: Yes (Disabling, Other)
  Sender: FDA-Public Use
  Company Number: US-BAYER-US-2007-006384

PATIENT
  Age: 32 Year
  Sex: Male
  Weight: 44 kg

DRUGS (20)
  1. MAGNEVIST [Suspect]
     Indication: ANGIOGRAM
     Dosage: TOTAL DAILY DOSE: 60 ML  UNIT DOSE: 20 ML
     Route: 042
     Dates: start: 20030429, end: 20030429
  2. KLONOPIN [Concomitant]
  3. RENAGEL [Concomitant]
     Dosage: UNIT DOSE: 1600 MG
     Route: 048
  4. ACETAMINOPHEN [Concomitant]
  5. ATIVAN [Concomitant]
  6. CENTRUM [Concomitant]
  7. EPOGEN [Concomitant]
     Dosage: 5000 UNK, 3X/WEEK
  8. FLORINEF ACETATE [Concomitant]
  9. NEPHROCAPS [Concomitant]
  10. NEURONTIN [Concomitant]
     Dosage: UNIT DOSE: 100 MG
     Route: 048
  11. PREVACID [Concomitant]
     Dosage: UNIT DOSE: 30 MG
     Route: 048
  12. TEGRETOL [Concomitant]
  13. TYLENOL W/ CODEINE [Concomitant]
  14. DIOVAN [Concomitant]
  15. COVERA-HS [Concomitant]
  16. PHOSLO [Concomitant]
  17. ULTRAVIST 150 [Concomitant]
     Indication: ARTERIOGRAM CORONARY
     Dosage: UNIT DOSE: 80 ML
  18. EPOGEN [Concomitant]
  19. IRON [Concomitant]
  20. ASPIRIN [Concomitant]

REACTIONS (14)
  - ARTHRALGIA [None]
  - EXTREMITY CONTRACTURE [None]
  - FATIGUE [None]
  - GENERAL PHYSICAL HEALTH DETERIORATION [None]
  - MOBILITY DECREASED [None]
  - MUSCULOSKELETAL STIFFNESS [None]
  - NEPHROGENIC SYSTEMIC FIBROSIS [None]
  - PAIN [None]
  - RASH PAPULAR [None]
  - SKIN DISCOLOURATION [None]
  - SKIN DISORDER [None]
  - SKIN FIBROSIS [None]
  - SKIN HYPERPIGMENTATION [None]
  - SKIN HYPERTROPHY [None]
